FAERS Safety Report 10422924 (Version 1)
Quarter: 2014Q3

REPORT INFORMATION
  Report Type: Spontaneous
  Country: US (occurrence: None)
  Receive Date: 20140722
  Receipt Date: 20140722
  Transmission Date: 20150326
  Serious: Yes (Other)
  Sender: FDA-Public Use
  Company Number: 163-10004-14055092

PATIENT
  Age: 59 Year
  Sex: Male
  Weight: 80.74 kg

DRUGS (7)
  1. OTEZLA [Suspect]
     Active Substance: APREMILAST
     Indication: PSORIATIC ARTHROPATHY
     Route: 048
     Dates: start: 20140522, end: 20140524
  2. FOLIC ACID. [Concomitant]
     Active Substance: FOLIC ACID
  3. ALEVE (NAPROXEN SODIUM) [Concomitant]
  4. PRILOSEC (OMEPRAZOLE) [Concomitant]
     Active Substance: OMEPRAZOLE MAGNESIUM
  5. TRAMADOL [Concomitant]
     Active Substance: TRAMADOL
  6. AXULFIDINE [Concomitant]
  7. PLAQUENIL (HYDROXYCHLOROQUINE PHOSPHATE) [Concomitant]
     Active Substance: HYDROXYCHLOROQUINE SULFATE

REACTIONS (1)
  - Diarrhoea [None]

NARRATIVE: CASE EVENT DATE: 20140522
